FAERS Safety Report 20397415 (Version 2)
Quarter: 2022Q1

REPORT INFORMATION
  Report Type: Spontaneous
  Country: US (occurrence: US)
  Receive Date: 20220131
  Receipt Date: 20220201
  Transmission Date: 20220424
  Serious: No
  Sender: FDA-Public Use
  Company Number: US-ABBVIE-21K-163-3778158-00

PATIENT
  Age: 48 Year
  Sex: Female
  Weight: 129.39 kg

DRUGS (6)
  1. HUMIRA [Suspect]
     Active Substance: ADALIMUMAB
     Indication: Ankylosing spondylitis
     Route: 058
     Dates: start: 20201218
  2. SULINDAC [Concomitant]
     Active Substance: SULINDAC
     Indication: Osteoarthritis
  3. SULINDAC [Concomitant]
     Active Substance: SULINDAC
     Indication: Inflammation
  4. BUPROPION [Concomitant]
     Active Substance: BUPROPION
     Indication: Depression
  5. BUPROPION [Concomitant]
     Active Substance: BUPROPION
     Indication: Weight decreased
  6. BUPROPION [Concomitant]
     Active Substance: BUPROPION
     Indication: Ex-tobacco user

REACTIONS (2)
  - Injection site bruising [Recovered/Resolved]
  - Device use error [Recovered/Resolved]

NARRATIVE: CASE EVENT DATE: 20210115
